FAERS Safety Report 24205123 (Version 1)
Quarter: 2024Q3

REPORT INFORMATION
  Report Type: Spontaneous
  Country: CA (occurrence: CA)
  Receive Date: 20240813
  Receipt Date: 20240813
  Transmission Date: 20241016
  Serious: Yes (Life-Threatening, Hospitalization, Other)
  Sender: B BRAUN
  Company Number: CA-B.Braun Medical Inc.-2160350

PATIENT
  Sex: Female

DRUGS (3)
  1. HEPARIN SODIUM IN DEXTROSE [Suspect]
     Active Substance: HEPARIN SODIUM
     Indication: Intensive care
  2. ENOXAPARIN [Concomitant]
     Active Substance: ENOXAPARIN
  3. TINZAPARIN [Concomitant]
     Active Substance: TINZAPARIN

REACTIONS (1)
  - Drug ineffective [Unknown]
